FAERS Safety Report 22752708 (Version 4)
Quarter: 2024Q4

REPORT INFORMATION
  Report Type: Report from Study
  Country: IT (occurrence: IT)
  Receive Date: 20230726
  Receipt Date: 20241210
  Transmission Date: 20250115
  Serious: Yes (Death, Hospitalization, Other)
  Sender: ROCHE
  Company Number: IT-ROCHE-3390457

PATIENT
  Age: 53 Year
  Sex: Male

DRUGS (13)
  1. OCRELIZUMAB [Suspect]
     Active Substance: OCRELIZUMAB
     Indication: Primary progressive multiple sclerosis
     Dosage: LAST INFUSION BEFORE ADMISSION WAS ON 14/JUN/2023, 600 MG EVERY 6 MONTHS
     Route: 042
     Dates: start: 20180223, end: 20180309
  2. OCRELIZUMAB [Suspect]
     Active Substance: OCRELIZUMAB
     Dosage: LAST ADMINISTRATION OF OCREVUS WAS RECEIVED ON 18/MAR/2024.
     Route: 042
     Dates: start: 20191016
  3. OXYCONTIN [Concomitant]
     Active Substance: OXYCODONE HYDROCHLORIDE
     Dosage: 60 MG X 2
  4. NALOXONE HYDROCHLORIDE\OXYCODONE HYDROCHLORIDE [Concomitant]
     Active Substance: NALOXONE HYDROCHLORIDE\OXYCODONE HYDROCHLORIDE
     Dosage: 40/20 1 TABLET
  5. LYRICA [Concomitant]
     Active Substance: PREGABALIN
     Dosage: 150 X 3
  6. BACLOFEN [Concomitant]
     Active Substance: BACLOFEN
     Dosage: 25 X 3
  7. NEBIVOLOL [Concomitant]
     Active Substance: NEBIVOLOL
     Dosage: 5 MG/DIE
  8. BRINTELLIX [Concomitant]
     Active Substance: VORTIOXETINE HYDROBROMIDE
     Dosage: 10
  9. RIVOTRIL [Concomitant]
     Active Substance: CLONAZEPAM
  10. DALFAMPRIDINE [Concomitant]
     Active Substance: DALFAMPRIDINE
     Dosage: 4 MG X 2,
  11. LEVOTHYROXINE SODIUM [Concomitant]
     Active Substance: LEVOTHYROXINE SODIUM
  12. PANTOPRAZOLE SODIUM [Concomitant]
     Active Substance: PANTOPRAZOLE SODIUM
  13. DOMPERIDONE [Concomitant]
     Active Substance: DOMPERIDONE
     Dosage: 10 MG X 3

REACTIONS (8)
  - COVID-19 pneumonia [Recovering/Resolving]
  - Respiratory acidosis [Recovering/Resolving]
  - Off label use [Unknown]
  - Death [Fatal]
  - Rest regimen [Unknown]
  - Iron deficiency anaemia [Unknown]
  - Anaemia [Unknown]
  - Respiratory failure [Unknown]

NARRATIVE: CASE EVENT DATE: 20220801
